FAERS Safety Report 23002245 (Version 2)
Quarter: 2023Q4

REPORT INFORMATION
  Report Type: Spontaneous
  Country: US (occurrence: US)
  Receive Date: 20230928
  Receipt Date: 20231107
  Transmission Date: 20240110
  Serious: No
  Sender: FDA-Public Use
  Company Number: US-SA-SAC20230922000654

PATIENT
  Age: 37 Year
  Sex: Male

DRUGS (1)
  1. DUPIXENT [Suspect]
     Active Substance: DUPILUMAB
     Indication: Eosinophilic oesophagitis
     Dosage: DOSE OR AMOUNT: 300MG/2ML FREQUENCY: EVERY 7 DAYS
     Route: 058
     Dates: start: 20230720

REACTIONS (3)
  - Pyrexia [Unknown]
  - COVID-19 [Recovered/Resolved]
  - Symptom recurrence [Unknown]
